FAERS Safety Report 14277264 (Version 3)
Quarter: 2017Q4

REPORT INFORMATION
  Report Type: Spontaneous
  Country: CH (occurrence: CH)
  Receive Date: 20171212
  Receipt Date: 20171220
  Transmission Date: 20180321
  Serious: Yes (Hospitalization)
  Sender: FDA-Public Use
  Company Number: CH-PFIZER INC-2017525203

PATIENT
  Age: 64 Year
  Sex: Male

DRUGS (4)
  1. DAFALGAN [Concomitant]
     Active Substance: ACETAMINOPHEN
     Indication: NECK PAIN
     Dosage: 1 G, BID
     Route: 048
  2. PANTOZOL [Suspect]
     Active Substance: PANTOPRAZOLE SODIUM
     Indication: PAIN PROPHYLAXIS
     Dosage: 40 MG, UNK
     Route: 048
     Dates: end: 20170824
  3. TILUR RETARD [Suspect]
     Active Substance: ACEMETACIN
     Indication: NECK PAIN
     Dosage: 90 MG, BID
     Route: 048
     Dates: end: 20170824
  4. MEPHADOLOR NEO [Suspect]
     Active Substance: MEFENAMIC ACID
     Indication: NECK PAIN
     Dosage: 500 MG, BID
     Route: 048

REACTIONS (8)
  - Hypokalaemia [Recovered/Resolved]
  - Nausea [Recovering/Resolving]
  - Vomiting [Recovering/Resolving]
  - Reactive gastropathy [Unknown]
  - Weight decreased [Unknown]
  - Dizziness [Recovering/Resolving]
  - Asthenia [Recovering/Resolving]
  - Hypomagnesaemia [Recovered/Resolved]

NARRATIVE: CASE EVENT DATE: 201708
